FAERS Safety Report 6973438-6 (Version None)
Quarter: 2010Q3

REPORT INFORMATION
  Report Type: 
  Country: None (occurrence: None)
  Receive Date: 20100909
  Receipt Date: 20100901
  Transmission Date: 20110219
  Serious: Yes (Hospitalization)
  Sender: FDA-Public Use
  Company Number: JP-MERCK-1006USA04014

PATIENT
  Age: 61 Year
  Sex: Female
  Weight: 60 kg

DRUGS (2)
  1. JANUVIA [Suspect]
     Indication: DIABETES MELLITUS
     Route: 048
     Dates: start: 20100522, end: 20100607
  2. COZAAR [Suspect]
     Indication: DIABETIC NEPHROPATHY
     Route: 048
     Dates: start: 20100511, end: 20100607

REACTIONS (1)
  - HEPATITIS [None]
